FAERS Safety Report 11438007 (Version 1)
Quarter: 2015Q3

REPORT INFORMATION
  Report Type: Spontaneous
  Country: US (occurrence: US)
  Receive Date: 20150831
  Receipt Date: 20150831
  Transmission Date: 20151125
  Serious: Yes (Hospitalization)
  Sender: FDA-Public Use
  Company Number: US-ABBVIE-15P-163-1451183-00

PATIENT
  Sex: Male
  Weight: 67.19 kg

DRUGS (8)
  1. DRONABINOL. [Suspect]
     Active Substance: DRONABINOL
     Indication: LIVER DISORDER
     Dosage: UNKNOWN
     Route: 048
     Dates: start: 201409, end: 201503
  2. DRONABINOL. [Suspect]
     Active Substance: DRONABINOL
     Indication: HEPATITIS C
  3. DRONABINOL. [Suspect]
     Active Substance: DRONABINOL
     Indication: DECREASED APPETITE
     Dosage: UNKNOWN
     Route: 048
     Dates: start: 2012, end: 2013
  4. SPRIALACTONE [Concomitant]
     Indication: FLUID RETENTION
  5. LACTULOSE. [Concomitant]
     Active Substance: LACTULOSE
     Indication: LIVER DISORDER
  6. HYDROXYZINE [Concomitant]
     Active Substance: HYDROXYZINE\HYDROXYZINE HYDROCHLORIDE
     Indication: PRURITUS
  7. RIBOFAXIN [Concomitant]
     Indication: LIVER DISORDER
  8. FUROSEMIDE. [Concomitant]
     Active Substance: FUROSEMIDE
     Indication: FLUID RETENTION

REACTIONS (3)
  - Hepatic failure [Not Recovered/Not Resolved]
  - Drug screen positive [Not Recovered/Not Resolved]
  - Off label use [Unknown]

NARRATIVE: CASE EVENT DATE: 2012
